FAERS Safety Report 24005985 (Version 1)
Quarter: 2024Q2

REPORT INFORMATION
  Report Type: Spontaneous
  Country: CN (occurrence: CN)
  Receive Date: 20240624
  Receipt Date: 20240624
  Transmission Date: 20240715
  Serious: Yes (Hospitalization, Other)
  Sender: FDA-Public Use
  Company Number: CN-002147023-NVSC2024CN129882

PATIENT
  Age: 3 Year
  Sex: Male
  Weight: 11 kg

DRUGS (5)
  1. OXCARBAZEPINE [Suspect]
     Active Substance: OXCARBAZEPINE
     Indication: Epilepsy
     Dosage: 30.000 MG, QD
     Route: 048
     Dates: start: 20240507, end: 20240526
  2. OXCARBAZEPINE [Suspect]
     Active Substance: OXCARBAZEPINE
     Dosage: 90.000 MG, BID
     Route: 048
     Dates: start: 20240527, end: 20240604
  3. CIMETIDINE [Concomitant]
     Active Substance: CIMETIDINE
     Indication: Gastrointestinal mucosal disorder
     Dosage: 0.100 G, QD
     Route: 041
     Dates: start: 20240529, end: 20240603
  4. CEFTRIAXONE SODIUM [Concomitant]
     Active Substance: CEFTRIAXONE SODIUM
     Indication: Infection
     Dosage: 0.800 G, QD
     Route: 041
     Dates: start: 20240529, end: 20240603
  5. SODIUM CHLORIDE [Concomitant]
     Active Substance: SODIUM CHLORIDE
     Indication: Vehicle solution use
     Dosage: 100.000 ML, QD
     Route: 041
     Dates: start: 20240529, end: 20240603

REACTIONS (3)
  - Erythema multiforme [Not Recovered/Not Resolved]
  - Pyrexia [Not Recovered/Not Resolved]
  - Seizure [Unknown]

NARRATIVE: CASE EVENT DATE: 20240603
